FAERS Safety Report 24984551 (Version 1)
Quarter: 2025Q1

REPORT INFORMATION
  Report Type: Other
  Country: FR (occurrence: FR)
  Receive Date: 20250219
  Receipt Date: 20250219
  Transmission Date: 20250408
  Serious: Yes (Life-Threatening, Hospitalization)
  Sender: ZYDUS PHARM
  Company Number: None

PATIENT

DRUGS (3)
  1. AMLODIPINE [Suspect]
     Active Substance: AMLODIPINE BESYLATE
     Indication: Intentional overdose
     Route: 048
     Dates: start: 20250115, end: 20250115
  2. BROMAZEPAM [Suspect]
     Active Substance: BROMAZEPAM
     Indication: Intentional overdose
     Route: 048
     Dates: start: 20250115, end: 20250115
  3. AMITRIPTYLINE [Suspect]
     Active Substance: AMITRIPTYLINE
     Indication: Intentional overdose
     Route: 048
     Dates: start: 20250115, end: 20250115

REACTIONS (3)
  - Coma [Recovered/Resolved]
  - Vasoplegia syndrome [Recovered/Resolved]
  - Poisoning deliberate [Recovered/Resolved]

NARRATIVE: CASE EVENT DATE: 20250115
